FAERS Safety Report 5889866-6 (Version None)
Quarter: 2008Q3

REPORT INFORMATION
  Report Type: 
  Country: None (occurrence: None)
  Receive Date: 20080919
  Receipt Date: 20080905
  Transmission Date: 20090109
  Serious: Yes (Other)
  Sender: FDA-Public Use
  Company Number: US-GENENTECH-267576

PATIENT
  Age: 73 Year
  Sex: Female

DRUGS (3)
  1. BEVACIZUMAB [Suspect]
     Indication: PANCREATIC CARCINOMA
     Dosage: 10 MG/KG, 2 X PER 28 DAYS
     Route: 042
     Dates: start: 20050404
  2. CETUXIMAB [Suspect]
     Indication: PANCREATIC CARCINOMA
     Dosage: 250 MG/M2, 3 X PER 28 DAY CYCLE
     Route: 042
     Dates: start: 20050404
  3. GEMCITABINE [Suspect]
     Indication: PANCREATIC CARCINOMA
     Dosage: 1000 MG/M2, 3 TIMES PER 28 DAY CYCLE
     Route: 042
     Dates: start: 20050404

REACTIONS (1)
  - PLATELET COUNT DECREASED [None]
